FAERS Safety Report 4746382-2 (Version None)
Quarter: 2005Q3

REPORT INFORMATION
  Report Type: 
  Country: None (occurrence: None)
  Receive Date: 20050815
  Receipt Date: 20050802
  Transmission Date: 20060218
  Serious: Yes (Hospitalization)
  Sender: FDA-Public Use
  Company Number: 2005111165

PATIENT
  Sex: Male

DRUGS (5)
  1. PROSTIN E2 [Suspect]
     Indication: LABOUR INDUCTION
     Dosage: 3 MG (3 MG)
     Dates: start: 20050719, end: 20050719
  2. OXYTOCIN (OXYTOCIN) [Suspect]
     Indication: LABOUR INDUCTION
     Dosage: 1.0  I.U.
     Dates: start: 20050719, end: 20050820
  3. KAPAKE (CODEINE PHOSPHATE, PARACETAMOL) [Concomitant]
  4. MEPERIDINE HCL [Concomitant]
  5. PROCHLORPERAZINE [Concomitant]

REACTIONS (2)
  - DRUG EXPOSURE DURING PREGNANCY [None]
  - FOETAL HEART RATE DECELERATION [None]
